FAERS Safety Report 12322820 (Version 1)
Quarter: 2016Q2

REPORT INFORMATION
  Report Type: Report from Study
  Country: US (occurrence: US)
  Receive Date: 20160502
  Receipt Date: 20160502
  Transmission Date: 20160815
  Serious: Yes (Hospitalization)
  Sender: FDA-Public Use
  Company Number: US-SA-2014SA073217

PATIENT
  Age: 75 Year
  Sex: Female

DRUGS (18)
  1. VICODIN [Concomitant]
     Active Substance: ACETAMINOPHEN\HYDROCODONE BITARTRATE
     Dosage: 1 TAB BY MOUTH 4 TIMES A DAY AS NEEDED
     Route: 048
  2. FOLVITE [Concomitant]
     Active Substance: FOLIC ACID
     Route: 048
  3. VICODIN [Concomitant]
     Active Substance: ACETAMINOPHEN\HYDROCODONE BITARTRATE
     Dosage: EVERY 6 HOURS AS NEEDED
     Route: 048
  4. LOMOTIL [Concomitant]
     Active Substance: ATROPINE SULFATE\DIPHENOXYLATE HYDROCHLORIDE
     Dosage: 1 TABLET BY MOUTH 4 TIMES DAILY AS NEEDED
     Route: 048
  5. TRIAMCINOLONE [Concomitant]
     Active Substance: TRIAMCINOLONE
     Route: 061
  6. ZOFRAN [Concomitant]
     Active Substance: ONDANSETRON HYDROCHLORIDE
     Dosage: 8MG BY MOUTH EVERY 8 HOURS AS NEEDED
     Route: 048
  7. BRINZOLAMIDE [Concomitant]
     Active Substance: BRINZOLAMIDE
     Dosage: 1-0.2% DROPS?APPLY TO EYE
  8. HYZAAR [Concomitant]
     Active Substance: HYDROCHLOROTHIAZIDE\LOSARTAN POTASSIUM
     Route: 048
  9. NIZORAL [Concomitant]
     Active Substance: KETOCONAZOLE
     Dosage: APPLY TOPICALLY DAILT TO THE RASH UNDER THE BREAST FOR ONE WEEK
     Route: 061
  10. DELTASONE [Concomitant]
     Active Substance: PREDNISONE
     Dosage: TAKEN 10MG BY MOUTH. TAPER AS DIRECTED.
     Route: 048
  11. NORVASC [Concomitant]
     Active Substance: AMLODIPINE BESYLATE
     Route: 048
  12. COMPAZINE [Concomitant]
     Active Substance: PROCHLORPERAZINE MALEATE
     Dosage: 10MG BY MOUTH EVERY 6 HOURS AS NEEDED
     Route: 048
  13. CORTICOSTEROIDS [Concomitant]
     Active Substance: CORTICOSTEROID NOS
  14. XELODA [Concomitant]
     Active Substance: CAPECITABINE
     Route: 048
  15. CAPECITABINE. [Suspect]
     Active Substance: CAPECITABINE
     Indication: NEOPLASM
     Route: 065
     Dates: start: 20140513, end: 20140526
  16. ATARAX [Concomitant]
     Active Substance: HYDROXYZINE\HYDROXYZINE HYDROCHLORIDE
     Dosage: 25MG BY MOUTH 3 TIMES DAILY AS NEEDED
     Route: 048
  17. OXYCODONE [Concomitant]
     Active Substance: OXYCODONE
     Dosage: 5MG BY MOUTH EVERY 4 HOURS AS NEEDED
     Route: 048
  18. AFLIBERCEPT [Suspect]
     Active Substance: AFLIBERCEPT
     Indication: NEOPLASM
     Route: 065
     Dates: start: 20140513, end: 20140513

REACTIONS (1)
  - Pain [Not Recovered/Not Resolved]

NARRATIVE: CASE EVENT DATE: 20140520
